FAERS Safety Report 7931636-9 (Version None)
Quarter: 2011Q4

REPORT INFORMATION
  Report Type: 
  Country: None (occurrence: None)
  Receive Date: 20111121
  Receipt Date: 20111115
  Transmission Date: 20120403
  Serious: Yes (Death, Life-Threatening, Hospitalization)
  Sender: FDA-Public Use
  Company Number: US-CELGENEUS-163-21880-11111627

PATIENT
  Sex: Female
  Weight: 55.842 kg

DRUGS (6)
  1. REVLIMID [Suspect]
     Indication: MULTIPLE MYELOMA
     Dosage: 10 MILLIGRAM
     Route: 048
     Dates: start: 20111007
  2. PRAVACHOL [Concomitant]
     Dosage: 40 MILLIGRAM
     Route: 048
     Dates: start: 20110701
  3. ARASEPT [Concomitant]
     Dosage: 10 MILLIGRAM
     Route: 048
     Dates: start: 20110701
  4. PLAVIX [Concomitant]
     Dosage: 75 MILLIGRAM
     Route: 048
     Dates: start: 20110701
  5. CELEXA [Concomitant]
     Dosage: 20 MILLIGRAM
     Route: 048
     Dates: start: 20110701
  6. PEPTID [Concomitant]
     Dosage: 20 MILLIGRAM
     Route: 048
     Dates: start: 20110701

REACTIONS (4)
  - DRUG INEFFECTIVE [None]
  - CEREBROVASCULAR ACCIDENT [None]
  - MULTIPLE MYELOMA [None]
  - DEATH [None]
